FAERS Safety Report 5778891-1 (Version None)
Quarter: 2008Q2

REPORT INFORMATION
  Report Type: 
  Country: None (occurrence: None)
  Receive Date: 20080619
  Receipt Date: 20080616
  Transmission Date: 20081010
  Serious: Yes (Death, Other)
  Sender: FDA-Public Use
  Company Number: US-BRISTOL-MYERS SQUIBB COMPANY-14229728

PATIENT
  Age: 80 Year
  Sex: Female

DRUGS (1)
  1. SPRYCEL [Suspect]
     Indication: CHRONIC MYELOID LEUKAEMIA

REACTIONS (7)
  - ASTHENIA [None]
  - BONE PAIN [None]
  - EYELID PTOSIS [None]
  - MALIGNANT NEOPLASM PROGRESSION [None]
  - OPTIC ISCHAEMIC NEUROPATHY [None]
  - THROMBOCYTOPENIA [None]
  - VISION BLURRED [None]
